FAERS Safety Report 6992384-5 (Version None)
Quarter: 2010Q3

REPORT INFORMATION
  Report Type: 
  Country: None (occurrence: None)
  Receive Date: 20100917
  Receipt Date: 20100909
  Transmission Date: 20110219
  Serious: Yes (Hospitalization)
  Sender: FDA-Public Use
  Company Number: JP-EISAI INC.-E3810-04084-SPO-JP

PATIENT
  Age: 82 Year
  Sex: Male

DRUGS (9)
  1. PARIET (RABEPRAZOLE) [Suspect]
     Indication: GASTRIC ULCER HAEMORRHAGE
     Route: 048
     Dates: start: 20100819, end: 20100831
  2. LYRICA [Concomitant]
     Indication: RHEUMATOID ARTHRITIS
     Route: 048
     Dates: start: 20100806, end: 20100831
  3. DICLOFENAC SODIUM [Concomitant]
  4. FLOMOX [Concomitant]
  5. ALPROSTADIL ALFADEX [Concomitant]
  6. GENTAMICIN SULFATE [Concomitant]
  7. PREDNISOLONE [Concomitant]
     Indication: RHEUMATOID ARTHRITIS
  8. AMBROXOL HYDROCHLORIDE [Concomitant]
  9. BETAMETHASONE [Concomitant]

REACTIONS (1)
  - DISSEMINATED INTRAVASCULAR COAGULATION [None]
